FAERS Safety Report 16659043 (Version 1)
Quarter: 2019Q3

REPORT INFORMATION
  Report Type: Spontaneous
  Country: PT (occurrence: PT)
  Receive Date: 20190801
  Receipt Date: 20190801
  Transmission Date: 20191004
  Serious: Yes (Disabling)
  Sender: FDA-Public Use
  Company Number: PT-ABBVIE-19K-130-2872316-00

PATIENT
  Age: 28 Year
  Sex: Female

DRUGS (2)
  1. IMRALDI [Suspect]
     Active Substance: ADALIMUMAB
     Indication: CROHN^S DISEASE
     Route: 058
     Dates: start: 201903
  2. HUMIRA [Suspect]
     Active Substance: ADALIMUMAB
     Indication: PRODUCT USED FOR UNKNOWN INDICATION
     Route: 058

REACTIONS (7)
  - Pruritus generalised [Unknown]
  - Injection site pruritus [Unknown]
  - Somnolence [Unknown]
  - Product substitution issue [Unknown]
  - No adverse event [Unknown]
  - Asthenia [Unknown]
  - Fatigue [Unknown]

NARRATIVE: CASE EVENT DATE: 201903
